FAERS Safety Report 8093925-X (Version None)
Quarter: 2012Q1

REPORT INFORMATION
  Report Type: 
  Country: None (occurrence: None)
  Receive Date: 20120130
  Receipt Date: 20120117
  Transmission Date: 20120608
  Serious: Yes (Hospitalization)
  Sender: FDA-Public Use
  Company Number: CA-ELI_LILLY_AND_COMPANY-CA201201005713

PATIENT
  Age: 59 Year
  Sex: Female

DRUGS (8)
  1. PANTOPRAZOLE [Concomitant]
  2. CALCIUM [Concomitant]
  3. DOCUSATE SODIUM [Concomitant]
  4. VITAMIN D [Concomitant]
  5. TYLENOL (CAPLET) [Concomitant]
  6. SINEMET [Concomitant]
  7. FORTEO [Suspect]
     Indication: OSTEOPOROSIS
     Dosage: 20 UG, QD
     Route: 058
     Dates: start: 20101201, end: 20120112
  8. FERROUS SULFATE TAB [Concomitant]

REACTIONS (4)
  - COLON CANCER [None]
  - ABDOMINAL RIGIDITY [None]
  - FAECAL VOMITING [None]
  - ABDOMINAL PAIN [None]
